FAERS Safety Report 24217371 (Version 1)
Quarter: 2024Q3

REPORT INFORMATION
  Report Type: Spontaneous
  Country: US (occurrence: None)
  Receive Date: 20240815
  Receipt Date: 20240815
  Transmission Date: 20241016
  Serious: No
  Sender: Public
  Company Number: None

PATIENT
  Age: 57 Year
  Sex: Male

DRUGS (2)
  1. TADALAFIL [Suspect]
     Active Substance: TADALAFIL
     Indication: Pulmonary hypertension
     Dosage: 20MG QD ORAL
     Route: 048
     Dates: start: 20240523, end: 20240625
  2. AMBRISENTAN [Suspect]
     Active Substance: AMBRISENTAN

REACTIONS (5)
  - Drug intolerance [None]
  - Diarrhoea [None]
  - Abdominal distension [None]
  - Dyspepsia [None]
  - Insomnia [None]

NARRATIVE: CASE EVENT DATE: 20240625
